FAERS Safety Report 9856674 (Version 1)
Quarter: 2014Q1

REPORT INFORMATION
  Report Type: Spontaneous
  Country: US (occurrence: US)
  Receive Date: 20140130
  Receipt Date: 20140130
  Transmission Date: 20141002
  Serious: Yes (Hospitalization)
  Sender: FDA-Public Use
  Company Number: US-GLAXOSMITHKLINE-A1057679A

PATIENT
  Age: 80 Year
  Sex: Female

DRUGS (8)
  1. ADVAIR [Suspect]
     Indication: ASTHMA
     Dosage: 1PUFF TWICE PER DAY
     Route: 055
     Dates: start: 201201
  2. ALBUTEROL [Suspect]
     Indication: ASTHMA
     Dosage: 1VA PER DAY
     Route: 055
     Dates: start: 201207, end: 201307
  3. DUONEB [Concomitant]
  4. COZAAR [Concomitant]
  5. LASIX [Concomitant]
  6. ATIVAN [Concomitant]
  7. CLARITIN [Concomitant]
  8. PREVACID [Concomitant]

REACTIONS (8)
  - Pulmonary congestion [Not Recovered/Not Resolved]
  - Pneumonia [Unknown]
  - Choking [Unknown]
  - Chest discomfort [Not Recovered/Not Resolved]
  - Bronchitis [Not Recovered/Not Resolved]
  - Drug hypersensitivity [Unknown]
  - Cough [Unknown]
  - Sneezing [Unknown]
